FAERS Safety Report 10259820 (Version 3)
Quarter: 2014Q3

REPORT INFORMATION
  Report Type: Spontaneous
  Country: US (occurrence: US)
  Receive Date: 20140625
  Receipt Date: 20140807
  Transmission Date: 20150326
  Serious: Yes (Hospitalization)
  Sender: FDA-Public Use
  Company Number: US-GLAXOSMITHKLINE-A1072785A

PATIENT
  Sex: Female

DRUGS (4)
  1. PAIN MEDICATIONS [Concomitant]
     Active Substance: UNSPECIFIED INGREDIENT
  2. VENTOLIN [Suspect]
     Active Substance: ALBUTEROL SULFATE
     Indication: ASTHMA
     Dosage: 90MCG AS REQUIRED
     Route: 055
     Dates: start: 20121227
  3. ADVAIR HFA [Suspect]
     Active Substance: FLUTICASONE PROPIONATE\SALMETEROL XINAFOATE
     Indication: ASTHMA
     Dosage: 2PUFF TWICE PER DAY
     Route: 055
     Dates: start: 20121227
  4. SINGULAIR [Suspect]
     Active Substance: MONTELUKAST SODIUM
     Indication: MULTIPLE ALLERGIES
     Route: 065
     Dates: start: 1998, end: 2012

REACTIONS (18)
  - Poisoning [Unknown]
  - Loss of consciousness [Unknown]
  - Aggression [Unknown]
  - Hiatus hernia [Unknown]
  - Local swelling [Unknown]
  - Contusion [Unknown]
  - Stress [Unknown]
  - Gastric ulcer [Unknown]
  - Underdose [Recovered/Resolved]
  - Therapeutic response decreased [Recovered/Resolved]
  - Disability [Unknown]
  - Inhalation therapy [Unknown]
  - Intentional product misuse [Unknown]
  - Menstruation irregular [Unknown]
  - Hypersensitivity [Unknown]
  - Weight decreased [Unknown]
  - Asthma [Unknown]
  - Allergy to chemicals [Not Recovered/Not Resolved]

NARRATIVE: CASE EVENT DATE: 2010
